FAERS Safety Report 4270827-8 (Version None)
Quarter: 2004Q1

REPORT INFORMATION
  Report Type: 
  Country: None (occurrence: None)
  Receive Date: 20040113
  Receipt Date: 20040105
  Transmission Date: 20041129
  Serious: Yes (Death)
  Sender: FDA-Public Use
  Company Number: BE-JNJFOC-20040100781

PATIENT
  Age: 56 Year
  Sex: Male

DRUGS (4)
  1. REOPRO (ABCIMAX) INJECTION [Suspect]
     Indication: CORONARY ARTERY SURGERY
     Dates: start: 20031125, end: 20031126
  2. PLAVIX [Concomitant]
  3. HEPARIN [Concomitant]
  4. DISPRIL (ACETYLSALICYLIC ACID) [Concomitant]

REACTIONS (3)
  - HAEMORRHAGE INTRACRANIAL [None]
  - INTRAVENTRICULAR HAEMORRHAGE [None]
  - POST PROCEDURAL HAEMORRHAGE [None]
